FAERS Safety Report 16956457 (Version 1)
Quarter: 2019Q4

REPORT INFORMATION
  Report Type: Spontaneous
  Country: US (occurrence: US)
  Receive Date: 20190905
  Receipt Date: 20190905
  Transmission Date: 20200122
  Serious: No
  Sender: FDA-Public Use
  Company Number: None

PATIENT
  Age: 47 Year
  Sex: Female
  Weight: 50.8 kg

DRUGS (1)
  1. PREGABALIN. [Suspect]
     Active Substance: PREGABALIN
     Indication: FIBROMYALGIA
     Route: 048
     Dates: start: 20190501, end: 20190826

REACTIONS (5)
  - Headache [None]
  - Dizziness [None]
  - Hypoaesthesia [None]
  - Balance disorder [None]
  - Paraesthesia [None]

NARRATIVE: CASE EVENT DATE: 20190820
